FAERS Safety Report 7020025-X (Version None)
Quarter: 2010Q3

REPORT INFORMATION
  Report Type: 
  Country: None (occurrence: None)
  Receive Date: 20100929
  Receipt Date: 20100921
  Transmission Date: 20110219
  Serious: Yes (Other)
  Sender: FDA-Public Use
  Company Number: US-JNJFOC-20100509684

PATIENT
  Sex: Male
  Weight: 72.58 kg

DRUGS (11)
  1. SANDOZ FENTANYL TRANSDERMAL SYSTEM [Suspect]
     Indication: BACK PAIN
     Dosage: NDC:0781-7241-55
     Route: 062
  2. SANDOZ FENTANYL TRANSDERMAL SYSTEM [Suspect]
     Indication: NECK PAIN
     Dosage: NDC:0781-7241-55
     Route: 062
  3. CARVEDILOL [Suspect]
     Indication: CARDIAC DISORDER
     Route: 048
  4. OXYCONTIN [Concomitant]
     Indication: PAIN
     Route: 048
  5. IMDUR [Concomitant]
     Indication: CHEST PAIN
     Route: 048
  6. ASPIRIN [Concomitant]
     Indication: ANTICOAGULANT THERAPY
     Route: 048
  7. LISINOPRIL [Concomitant]
     Indication: BLOOD PRESSURE
     Route: 048
  8. NEXIUM [Concomitant]
     Indication: GASTROOESOPHAGEAL REFLUX DISEASE
     Route: 048
  9. PLAVIX [Concomitant]
     Indication: ANTICOAGULANT THERAPY
     Route: 048
  10. XANAX [Concomitant]
     Indication: ANXIETY
     Route: 048
  11. FLEXERIL [Concomitant]
     Indication: MUSCLE RELAXANT THERAPY
     Route: 048

REACTIONS (3)
  - DRUG DIVERSION [None]
  - IMPAIRED DRIVING ABILITY [None]
  - PRODUCT QUALITY ISSUE [None]
